FAERS Safety Report 24656710 (Version 2)
Quarter: 2024Q4

REPORT INFORMATION
  Report Type: Spontaneous
  Country: JP (occurrence: JP)
  Receive Date: 20241124
  Receipt Date: 20241129
  Transmission Date: 20250114
  Serious: No
  Sender: AMGEN
  Company Number: JP-Vifor (International) Inc.-VIT-2024-10772

PATIENT
  Age: 8 Decade

DRUGS (2)
  1. TAVNEOS [Suspect]
     Active Substance: AVACOPAN
     Indication: Anti-neutrophil cytoplasmic antibody positive vasculitis
     Dosage: UNK
     Route: 048
  2. RITUXIMAB [Concomitant]
     Active Substance: RITUXIMAB
     Indication: Anti-neutrophil cytoplasmic antibody positive vasculitis
     Dosage: UNK
     Route: 040

REACTIONS (2)
  - Drug ineffective [Unknown]
  - No adverse event [Unknown]
